FAERS Safety Report 6195694-7 (Version None)
Quarter: 2009Q2

REPORT INFORMATION
  Report Type: 
  Country: None (occurrence: None)
  Receive Date: 20090519
  Receipt Date: 20090505
  Transmission Date: 20091009
  Serious: Yes (Hospitalization)
  Sender: FDA-Public Use
  Company Number: US-GENENTECH-282859

PATIENT
  Sex: Female

DRUGS (8)
  1. TRASTUZUMAB [Suspect]
     Indication: BREAST CANCER
     Dosage: 560 MG, Q3W
     Route: 042
     Dates: start: 20090424
  2. BEVACIZUMAB [Suspect]
     Indication: BREAST CANCER
     Dosage: 1050 MG, Q3W
     Route: 042
     Dates: start: 20090424
  3. DOCETAXEL [Suspect]
     Indication: BREAST CANCER
     Dosage: 131 MG, Q3W
     Route: 042
     Dates: start: 20090424
  4. CARBOPLATIN [Suspect]
     Indication: BREAST CANCER
     Dosage: 820 MG, Q3W
     Route: 042
     Dates: start: 20090424
  5. TYLENOL [Concomitant]
     Indication: DRUG USE FOR UNKNOWN INDICATION
     Dosage: UNK
     Dates: start: 20090304
  6. PRILOSEC [Concomitant]
     Indication: DRUG USE FOR UNKNOWN INDICATION
     Dosage: UNK
     Dates: start: 20090417, end: 20090430
  7. IMODIUM [Concomitant]
     Indication: DRUG USE FOR UNKNOWN INDICATION
     Dosage: UNK
     Dates: start: 20090428
  8. NEXIUM [Concomitant]
     Indication: DRUG USE FOR UNKNOWN INDICATION
     Dosage: UNK
     Dates: start: 20090430

REACTIONS (3)
  - ABDOMINAL PAIN [None]
  - DIARRHOEA [None]
  - GASTROINTESTINAL HAEMORRHAGE [None]
